FAERS Safety Report 9291645 (Version 5)
Quarter: 2015Q2

REPORT INFORMATION
  Report Type: Spontaneous
  Country: US (occurrence: US)
  Receive Date: 20130516
  Receipt Date: 20150420
  Transmission Date: 20150821
  Serious: Yes (Hospitalization, Other)
  Sender: FDA-Public Use
  Company Number: US-009507513-1305USA009444

PATIENT
  Sex: Male
  Weight: 114.74 kg

DRUGS (2)
  1. PROPECIA [Suspect]
     Active Substance: FINASTERIDE
     Dosage: 1 MG, UNK
     Route: 048
     Dates: start: 20110124, end: 20111104
  2. PROPECIA [Suspect]
     Active Substance: FINASTERIDE
     Indication: ALOPECIA
     Dosage: 1 MG, QD
     Route: 048
     Dates: start: 2005

REACTIONS (31)
  - Upper respiratory tract infection [Unknown]
  - Varicose vein [Unknown]
  - Insomnia [Unknown]
  - Arthralgia [Unknown]
  - Dermatitis contact [Unknown]
  - Hypothyroidism [Unknown]
  - Cervical radiculopathy [Unknown]
  - Coeliac disease [Unknown]
  - Headache [Unknown]
  - Sexual dysfunction [Not Recovered/Not Resolved]
  - Surgery [Unknown]
  - Attention deficit/hyperactivity disorder [Unknown]
  - Gynaecomastia [Unknown]
  - Testicular pain [Unknown]
  - Palpitations [Unknown]
  - Bipolar disorder [Unknown]
  - Blood pressure increased [Unknown]
  - Surgery [Unknown]
  - Nipple swelling [Unknown]
  - Otitis media [Unknown]
  - High risk sexual behaviour [Unknown]
  - Chest pain [Unknown]
  - Sinus disorder [Unknown]
  - Epididymitis [Unknown]
  - Lumbar radiculopathy [Unknown]
  - Pharyngitis [Unknown]
  - Erectile dysfunction [Not Recovered/Not Resolved]
  - Libido decreased [Unknown]
  - Back pain [Unknown]
  - Skin abrasion [Unknown]
  - Ligament sprain [Unknown]

NARRATIVE: CASE EVENT DATE: 2005
